FAERS Safety Report 10636275 (Version 2)
Quarter: 2014Q4

REPORT INFORMATION
  Report Type: Spontaneous
  Country: GB (occurrence: GB)
  Receive Date: 20141206
  Receipt Date: 20141206
  Transmission Date: 20150529
  Serious: Yes (Hospitalization, Other)
  Sender: FDA-Public Use
  Company Number: GB-AUROBINDO-AUR-APL-2014-12572

PATIENT
  Age: 52 Year
  Sex: Female

DRUGS (4)
  1. CLARITHROMYCIN 500MG [Suspect]
     Active Substance: CLARITHROMYCIN
     Indication: MYCOBACTERIUM ABSCESSUS INFECTION
     Dosage: 500 MG, TWO TIMES A DAY
     Route: 048
  2. MOXIFLOXACIN [Concomitant]
     Active Substance: MOXIFLOXACIN
     Indication: MYCOBACTERIUM ABSCESSUS INFECTION
     Dosage: 400 MG, ONCE A DAY
     Route: 048
  3. MEROPENEM. [Suspect]
     Active Substance: MEROPENEM
     Indication: MYCOBACTERIUM ABSCESSUS INFECTION
     Dosage: 1 G, 3 TIMES A DAY
     Route: 042
  4. TIGECYCLINE [Suspect]
     Active Substance: TIGECYCLINE
     Indication: MYCOBACTERIUM ABSCESSUS INFECTION
     Dosage: 50 MG, TWO TIMES A DAY
     Route: 042

REACTIONS (7)
  - Diarrhoea [Unknown]
  - Liver disorder [Unknown]
  - Liver function test abnormal [Unknown]
  - Tinnitus [Unknown]
  - Nausea [Unknown]
  - Toxicity to various agents [Unknown]
  - Anxiety [Unknown]
